FAERS Safety Report 7653311-0 (Version None)
Quarter: 2011Q3

REPORT INFORMATION
  Report Type: 
  Country: None (occurrence: None)
  Receive Date: 20110803
  Receipt Date: 20110726
  Transmission Date: 20111222
  Serious: Yes (Death, Other)
  Sender: FDA-Public Use
  Company Number: ZA-BAXTER-2011BH024505

PATIENT
  Sex: Male

DRUGS (2)
  1. FEIBA [Suspect]
     Indication: FACTOR VIII INHIBITION
     Route: 065
  2. FEIBA [Suspect]
     Indication: FACTOR VIII DEFICIENCY
     Route: 065

REACTIONS (2)
  - DEATH [None]
  - ACUTE RESPIRATORY DISTRESS SYNDROME [None]
